FAERS Safety Report 6620936-0 (Version None)
Quarter: 2010Q1

REPORT INFORMATION
  Report Type: 
  Country: None (occurrence: None)
  Receive Date: 20100309
  Receipt Date: 20100304
  Transmission Date: 20100710
  Serious: Yes (Hospitalization)
  Sender: FDA-Public Use
  Company Number: US-PERRIGO-10US007591

PATIENT
  Age: 19 Year
  Sex: Male

DRUGS (3)
  1. IBUPROFEN 200 MG 604 [Suspect]
     Indication: INTENTIONAL OVERDOSE
     Dosage: 200-300 TABLETS
     Route: 048
  2. COCAINE [Suspect]
     Indication: DRUG ABUSE
     Dosage: 2 LINES
     Route: 045
  3. ALPRAZOLAM [Suspect]
     Indication: INTENTIONAL OVERDOSE
     Dosage: UNKNOWN
     Route: 048

REACTIONS (5)
  - DEPRESSED LEVEL OF CONSCIOUSNESS [None]
  - HAEMATEMESIS [None]
  - INTENTIONAL OVERDOSE [None]
  - METABOLIC ACIDOSIS [None]
  - SOMNOLENCE [None]
